FAERS Safety Report 6581064-6 (Version None)
Quarter: 2010Q1

REPORT INFORMATION
  Report Type: 
  Country: None (occurrence: None)
  Receive Date: 20100215
  Receipt Date: 20100203
  Transmission Date: 20100710
  Serious: Yes (Hospitalization, Other)
  Sender: FDA-Public Use
  Company Number: PHHY2010BR06217

PATIENT
  Age: 67 Year
  Sex: Male
  Weight: 75 kg

DRUGS (4)
  1. GALVUS MET [Suspect]
     Indication: DIABETES MELLITUS
     Dosage: 1 DF, BID
     Route: 048
  2. GALVUS MET [Suspect]
     Dosage: 1 TABLET (1000/50 MG) IN THE MORNING AND NIGHT
     Route: 048
  3. GALVUS MET [Suspect]
     Dosage: 1 TABLET (1000/50 MG) AFTER THE LUNCH
     Route: 048
  4. HUMULIN R [Concomitant]
     Dosage: 10 UI IN THE MORNING AND 16 UI AT NIGHT

REACTIONS (2)
  - HYPERGLYCAEMIA [None]
  - TOE AMPUTATION [None]
